FAERS Safety Report 5162243-1 (Version None)
Quarter: 2006Q4

REPORT INFORMATION
  Report Type: 
  Country: None (occurrence: None)
  Receive Date: 20061121
  Receipt Date: 20061108
  Transmission Date: 20070319
  Serious: Yes (Other)
  Sender: FDA-Public Use
  Company Number: PAR_1089_2006

PATIENT
  Age: 80 Year
  Sex: Male
  Weight: 78.0187 kg

DRUGS (7)
  1. HYDROXYUREA [Suspect]
     Indication: PLATELET COUNT INCREASED
     Dosage: 1 G QHS PO
     Route: 048
  2. SYNTHROID [Concomitant]
  3. PROSCAR [Concomitant]
  4. ASPIRIN [Concomitant]
  5. NPH INSULIN [Concomitant]
  6. GLYBURIDE [Concomitant]
  7. FLOMAX [Concomitant]

REACTIONS (3)
  - CAROTID ARTERY OCCLUSION [None]
  - RASH ERYTHEMATOUS [None]
  - TRANSIENT ISCHAEMIC ATTACK [None]
